FAERS Safety Report 7259107-6 (Version None)
Quarter: 2011Q1

REPORT INFORMATION
  Report Type: 
  Country: None (occurrence: None)
  Receive Date: 20110129
  Receipt Date: 20100811
  Transmission Date: 20110831
  Serious: No
  Sender: FDA-Public Use
  Company Number: US-ABBOTT-10P-163-0663811-00

PATIENT
  Age: 49 Year
  Sex: Female

DRUGS (17)
  1. METHOTREXATE [Concomitant]
     Indication: RHEUMATOID ARTHRITIS
  2. FOLIC ACID [Concomitant]
     Indication: ANAEMIA
  3. HYDROPHENODINE [Concomitant]
     Indication: HYPERSENSITIVITY
  4. NAPROXEN [Concomitant]
     Indication: PAIN
     Dosage: NO MORE THAN BID FOR RIGHT HAND MUSCLE PAIN
  5. HUMIRA [Suspect]
     Indication: RHEUMATOID ARTHRITIS
     Dates: start: 20100601
  6. LODIPINE BESYLATE [Concomitant]
     Indication: PRODUCT USED FOR UNKNOWN INDICATION
  7. PANTOPRAZOLE [Concomitant]
     Indication: GASTRITIS
  8. PREDNISONE [Concomitant]
     Indication: ARTHRITIS
  9. AVALIDE [Concomitant]
     Indication: HYPERTENSION
     Dosage: 330 - 125 DAILY
  10. DETROL LA [Concomitant]
     Indication: URINARY RETENTION
  11. TERBINOPHEN [Concomitant]
     Indication: TINEA PEDIS
  12. HYDROCHLOROTHIAZIDE [Concomitant]
     Indication: PRODUCT USED FOR UNKNOWN INDICATION
  13. LIPITOR [Concomitant]
     Indication: BLOOD CHOLESTEROL INCREASED
  14. TRAMADOL HCL [Concomitant]
     Indication: ARTHRALGIA
  15. ATENOLOL [Concomitant]
     Indication: PRODUCT USED FOR UNKNOWN INDICATION
  16. ACTOS [Concomitant]
     Indication: DIABETES MELLITUS
  17. SINGULAIR [Concomitant]
     Indication: HYPERSENSITIVITY

REACTIONS (3)
  - OROPHARYNGEAL PAIN [None]
  - FEELING ABNORMAL [None]
  - NASOPHARYNGITIS [None]
